FAERS Safety Report 6234214-5 (Version None)
Quarter: 2009Q2

REPORT INFORMATION
  Report Type: 
  Country: None (occurrence: None)
  Receive Date: 20090612
  Receipt Date: 20090602
  Transmission Date: 20091009
  Serious: Yes (Hospitalization)
  Sender: FDA-Public Use
  Company Number: 1000006477

PATIENT
  Age: 11 Day
  Sex: Male

DRUGS (1)
  1. INDOMETHACIN [Suspect]
     Indication: BARTTER'S SYNDROME
     Dosage: 1 MG/KG/DAY (1 IN 1 D), TRANSPLACENTAL
     Route: 064

REACTIONS (7)
  - ABDOMINAL DISTENSION [None]
  - BARTTER'S SYNDROME [None]
  - HYPOSTHENURIA [None]
  - LARGE INTESTINE PERFORATION [None]
  - MATERNAL DRUGS AFFECTING FOETUS [None]
  - METABOLIC ALKALOSIS [None]
  - VOMITING NEONATAL [None]
